FAERS Safety Report 7002180-0 (Version None)
Quarter: 2010Q3

REPORT INFORMATION
  Report Type: 
  Country: None (occurrence: None)
  Receive Date: 20100920
  Receipt Date: 20100908
  Transmission Date: 20110219
  Serious: Yes (Other)
  Sender: FDA-Public Use
  Company Number: BR-PFIZER INC-2010113400

PATIENT
  Age: 31 Year
  Sex: Male
  Weight: 80 kg

DRUGS (3)
  1. FRONTAL [Suspect]
     Indication: PANIC DISORDER WITH AGORAPHOBIA
     Dosage: 0.5 MG, 1X/DAY
     Route: 048
     Dates: start: 20100903
  2. SERTRALINE [Concomitant]
     Dosage: 50 MG, UNK
  3. PURAN T4 [Concomitant]
     Indication: HYPOTHYROIDISM
     Dosage: 50 UG, 1X/DAY
     Dates: start: 20050101

REACTIONS (8)
  - ABDOMINAL DISCOMFORT [None]
  - FEELING ABNORMAL [None]
  - HEADACHE [None]
  - HYPOAESTHESIA [None]
  - IRRITABILITY [None]
  - MUSCLE SPASMS [None]
  - NERVOUSNESS [None]
  - PANIC DISORDER [None]
